FAERS Safety Report 5680699-2 (Version None)
Quarter: 2008Q1

REPORT INFORMATION
  Report Type: 
  Country: None (occurrence: None)
  Receive Date: 20080326
  Receipt Date: 20080225
  Transmission Date: 20080703
  Serious: No
  Sender: FDA-Public Use
  Company Number: US-BAUSCH-2008BL000845

PATIENT
  Age: 59 Year
  Sex: Male

DRUGS (8)
  1. DICLOFENAC SODIUM OPHTHALMIC SOLUTION 0.1% [Suspect]
     Indication: EYE IRRITATION
     Route: 047
     Dates: start: 20080129, end: 20080130
  2. GLYBURIDE [Concomitant]
     Indication: DIABETES MELLITUS
     Route: 048
     Dates: start: 20060201
  3. METFORMIN [Concomitant]
     Indication: DIABETES MELLITUS
     Route: 048
     Dates: start: 20060201
  4. LANTUS [Concomitant]
     Indication: DIABETES MELLITUS
     Route: 058
     Dates: start: 20070801
  5. HYDROCHLOROTHIAZIDE [Concomitant]
     Indication: HYPERTENSION
     Route: 048
     Dates: start: 20060201
  6. NADOLOL [Concomitant]
     Indication: HYPERTENSION
     Route: 048
     Dates: start: 20060201
  7. ENALAPRIL MALEATE [Concomitant]
     Indication: HYPERTENSION
     Route: 048
     Dates: start: 20060201
  8. ASPIRIN [Concomitant]
     Route: 048

REACTIONS (4)
  - CONDITION AGGRAVATED [None]
  - EYE IRRITATION [None]
  - EYE PAIN [None]
  - SKIN BURNING SENSATION [None]
